FAERS Safety Report 4732996-2 (Version None)
Quarter: 2005Q3

REPORT INFORMATION
  Report Type: 
  Country: None (occurrence: None)
  Receive Date: 20050725
  Receipt Date: 20040524
  Transmission Date: 20060218
  Serious: Yes (Life-Threatening, Hospitalization)
  Sender: FDA-Public Use
  Company Number: WAES 0405USA01782

PATIENT
  Age: 94 Year
  Sex: Male

DRUGS (3)
  1. VIOXX [Suspect]
     Dosage: 25 MG/DAILY/PO
     Route: 048
  2. CAPTOPRIL MSD [Concomitant]
  3. DIGOXIN [Concomitant]

REACTIONS (1)
  - HYPERTENSION [None]
